FAERS Safety Report 9989468 (Version 1)
Quarter: 2014Q1

REPORT INFORMATION
  Report Type: Spontaneous
  Country: US (occurrence: None)
  Receive Date: 20140123
  Receipt Date: 20140123
  Transmission Date: 20141002
  Serious: Yes (Hospitalization)
  Sender: FDA-Public Use
  Company Number: UTC-039779

PATIENT
  Age: 58 Year
  Sex: Female
  Weight: 66.36 kg

DRUGS (3)
  1. REMODULIN (2.5 MILLIGRAM/MILLILITERS, INJECTION FOR INFUSION) (TREPROSTINIL SODIUM) [Suspect]
     Indication: COR PULMONALE CHRONIC
     Route: 041
     Dates: start: 20110119
  2. REVATIO (SILDENAFIL CITARATE) UNKNOWN [Concomitant]
  3. COUMADIN (WARFARIN SODIUM) UNKNOWN [Concomitant]

REACTIONS (4)
  - Dizziness [None]
  - Hypopnoea [None]
  - Device failure [None]
  - Nausea [None]
